FAERS Safety Report 24108778 (Version 1)
Quarter: 2024Q3

REPORT INFORMATION
  Report Type: Spontaneous
  Country: IT (occurrence: IT)
  Receive Date: 20240718
  Receipt Date: 20240718
  Transmission Date: 20241017
  Serious: Yes (Hospitalization, Other)
  Sender: RANBAXY
  Company Number: IT-SUN PHARMACEUTICAL INDUSTRIES LTD-2024R1-457054

PATIENT
  Age: 56 Year
  Sex: Female

DRUGS (4)
  1. BISOPROLOL [Suspect]
     Active Substance: BISOPROLOL\BISOPROLOL FUMARATE
     Indication: Myocarditis
     Dosage: 3.75 MILLIGRAM
     Route: 065
  2. EMPAGLIFLOZIN [Suspect]
     Active Substance: EMPAGLIFLOZIN
     Indication: Myocarditis
     Dosage: UNK
     Route: 065
  3. RAMIPRIL [Suspect]
     Active Substance: RAMIPRIL
     Indication: Myocarditis
     Dosage: 5 MILLIGRAM
     Route: 065
  4. RANOLAZINE [Suspect]
     Active Substance: RANOLAZINE
     Indication: Myocarditis
     Dosage: 1000 MILLIGRAM
     Route: 065

REACTIONS (2)
  - Disease progression [Recovered/Resolved]
  - Disease recurrence [Recovered/Resolved]
